FAERS Safety Report 8099007-5 (Version None)
Quarter: 2012Q1

REPORT INFORMATION
  Report Type: 
  Country: None (occurrence: None)
  Receive Date: 20120129
  Receipt Date: 20111024
  Transmission Date: 20120608
  Serious: No
  Sender: FDA-Public Use
  Company Number: US-ABBOTT-11P-163-0868053-00

PATIENT
  Age: 63 Year
  Sex: Female

DRUGS (11)
  1. HUMIRA [Suspect]
     Indication: PSORIATIC ARTHROPATHY
     Dates: start: 20111010
  2. TRAMADOL HCL [Concomitant]
     Indication: FIBROMYALGIA
     Dosage: ONE EVERY 8 HOURS AS NEEDED
  3. TRAMADOL HCL [Concomitant]
     Indication: PAIN
  4. METHOCARBAMOL [Concomitant]
     Indication: MYALGIA
     Dosage: ONE EVERY 8 HOURS AS NEEDED
  5. PREDNISONE TAB [Concomitant]
     Indication: PRODUCT USED FOR UNKNOWN INDICATION
     Dosage: DAILY
  6. LASIX [Concomitant]
     Indication: SWELLING
     Dosage: 40-80MG DAILY, USUALLY TAKES 40MG
  7. SYNTHROID [Concomitant]
     Indication: PRODUCT USED FOR UNKNOWN INDICATION
     Dosage: DAILY
  8. FLEXERIL [Concomitant]
     Indication: PRODUCT USED FOR UNKNOWN INDICATION
     Dosage: AT BEDTIME
  9. CORGARD [Concomitant]
     Indication: HYPERTENSION
     Dosage: DAILY
  10. ARAVA [Concomitant]
     Indication: ARTHRITIS
     Dosage: DAILY
  11. POTASSIUM [Concomitant]
     Indication: PRODUCT USED FOR UNKNOWN INDICATION
     Dosage: DAILY, BUT INCREASES TO 20MEQ IF TAKING 80MG OF LASIX

REACTIONS (5)
  - DEVICE MALFUNCTION [None]
  - INJECTION SITE HAEMORRHAGE [None]
  - INJECTION SITE PAIN [None]
  - WRONG TECHNIQUE IN DRUG USAGE PROCESS [None]
  - INCORRECT DOSE ADMINISTERED [None]
